FAERS Safety Report 17262059 (Version 3)
Quarter: 2020Q1

REPORT INFORMATION
  Report Type: Report from Study
  Country: CA (occurrence: CA)
  Receive Date: 20200113
  Receipt Date: 20200129
  Transmission Date: 20200409
  Serious: Yes (Other)
  Sender: FDA-Public Use
  Company Number: CA-JNJFOC-20191139400

PATIENT
  Sex: Male
  Weight: 100 kg

DRUGS (4)
  1. REMICADE [Suspect]
     Active Substance: INFLIXIMAB
     Indication: CROHN^S DISEASE
     Route: 042
     Dates: start: 20110326, end: 20191111
  2. REMICADE [Suspect]
     Active Substance: INFLIXIMAB
     Route: 042
     Dates: start: 2019, end: 20191111
  3. REMICADE [Suspect]
     Active Substance: INFLIXIMAB
     Route: 042
     Dates: start: 2019, end: 20191111
  4. REMICADE [Suspect]
     Active Substance: INFLIXIMAB
     Dosage: DOSE ALSO REPORTED AS 900 MG
     Route: 042
     Dates: start: 201904, end: 2019

REACTIONS (5)
  - Lupus-like syndrome [Unknown]
  - Off label use [Unknown]
  - Drug level decreased [Unknown]
  - Product use issue [Unknown]
  - Psoriasis [Recovering/Resolving]

NARRATIVE: CASE EVENT DATE: 2019
